FAERS Safety Report 5475088-X (Version None)
Quarter: 2007Q4

REPORT INFORMATION
  Report Type: 
  Country: None (occurrence: None)
  Receive Date: 20071002
  Receipt Date: 20070925
  Transmission Date: 20080405
  Serious: Yes (Hospitalization)
  Sender: FDA-Public Use
  Company Number: NL-BOEHRINGER INGELHEIM PHARMACEUTICALS, INC.-2007-NL-00376NL

PATIENT
  Sex: Male

DRUGS (7)
  1. SPIRIVA [Suspect]
     Dates: start: 20070501, end: 20070913
  2. PREDNISON [Concomitant]
  3. SERETIDE [Concomitant]
  4. SIMVASTATIN [Concomitant]
  5. TEMAZEPAM [Concomitant]
  6. CITALOPRAM HYDROBROMIDE [Concomitant]
  7. NOVOMIX [Concomitant]
     Indication: DIABETES MELLITUS
     Dosage: DAILY DOSE DEPENDS ON BLOOD SUGAR LEVEL

REACTIONS (1)
  - CHRONIC OBSTRUCTIVE PULMONARY DISEASE [None]
